FAERS Safety Report 6404893-8 (Version None)
Quarter: 2009Q4

REPORT INFORMATION
  Report Type: 
  Country: None (occurrence: None)
  Receive Date: 20091019
  Receipt Date: 20090918
  Transmission Date: 20100525
  Serious: No
  Sender: FDA-Public Use
  Company Number: US-BAYER-200934126NA

PATIENT

DRUGS (1)
  1. BETASERON [Suspect]
     Indication: DRUG USE FOR UNKNOWN INDICATION
     Dosage: AS USED: 8 MIU
     Route: 058
     Dates: start: 19930101

REACTIONS (2)
  - INJECTION SITE MASS [None]
  - PERIPHERAL SENSORY NEUROPATHY [None]
